FAERS Safety Report 9281925 (Version 1)
Quarter: 2013Q2

REPORT INFORMATION
  Report Type: Spontaneous
  Country: AU (occurrence: AU)
  Receive Date: 20130510
  Receipt Date: 20130510
  Transmission Date: 20140414
  Serious: Yes (Hospitalization)
  Sender: FDA-Public Use
  Company Number: AU-009507513-1305AUS003216

PATIENT
  Age: 76 Year
  Sex: Male

DRUGS (10)
  1. SINEMET [Suspect]
     Dosage: 3 DOSE UNSPECIFIED  DAILY
     Route: 048
     Dates: start: 20121015, end: 20130220
  2. RASAGILINE MESYLATE [Suspect]
     Dosage: 1 MILIGRAM DAILY
     Route: 048
     Dates: start: 20130124, end: 20130210
  3. AMLODIPINE [Concomitant]
     Dosage: 10 MILLIGRAM DAILY
     Route: 048
  4. ASPIRIN [Concomitant]
     Dosage: 100 MILLIGRAM DAILY
     Route: 048
  5. ATENOLOL [Concomitant]
     Dosage: 25 MG DAILY
     Route: 048
  6. FOSINOPRIL SODIUM (+) HYDROCHLOROTHIAZIDE [Concomitant]
     Dosage: 12.5 MG DAILY
     Route: 048
     Dates: start: 20130124, end: 20130210
  7. LANTUS [Concomitant]
     Dosage: 28 UNIT DAILY
     Route: 042
  8. METFORMIN HYDROCHLORIDE [Concomitant]
     Dosage: 2 GRAM DAILY
     Route: 048
  9. MELOXICAM [Concomitant]
     Dosage: 15 MG DAILY
     Route: 048
  10. PRAVASTATIN SODIUM [Concomitant]
     Dosage: 40 MG DAILY
     Route: 048

REACTIONS (3)
  - Delirium [Recovered/Resolved]
  - Confusional state [Recovered/Resolved]
  - Somnolence [Recovered/Resolved]
